FAERS Safety Report 7791539-X (Version None)
Quarter: 2011Q3

REPORT INFORMATION
  Report Type: 
  Country: None (occurrence: None)
  Receive Date: 20110930
  Receipt Date: 20110930
  Transmission Date: 20111222
  Serious: No
  Sender: FDA-Public Use
  Company Number: None

PATIENT
  Sex: Female
  Weight: 63.5036 kg

DRUGS (2)
  1. RECLAST [Suspect]
     Indication: OSTEOPOROSIS
     Dosage: ONCE ANNUALLY IV
     Route: 042
     Dates: start: 20100831
  2. RECLAST [Suspect]
     Indication: OSTEOPOROSIS
     Dosage: ONCE ANNUALLY IV
     Route: 042
     Dates: start: 20081014

REACTIONS (3)
  - SKIN DISORDER [None]
  - SKIN EXFOLIATION [None]
  - DERMATITIS [None]
